FAERS Safety Report 17509883 (Version 2)
Quarter: 2020Q2

REPORT INFORMATION
  Report Type: Report from Study
  Country: None (occurrence: CO)
  Receive Date: 20200306
  Receipt Date: 20200414
  Transmission Date: 20200713
  Serious: Yes (Hospitalization, Other)
  Sender: FDA-Public Use
  Company Number: CO-ABBVIE-19K-036-2837840-00

PATIENT
  Age: 50 Year
  Sex: Female
  Weight: 68 kg

DRUGS (1)
  1. HUMIRA [Suspect]
     Active Substance: ADALIMUMAB
     Indication: PSORIASIS
     Route: 058
     Dates: end: 20190507

REACTIONS (11)
  - Humerus fracture [Recovering/Resolving]
  - Peripheral swelling [Not Recovered/Not Resolved]
  - Road traffic accident [Recovering/Resolving]
  - Psoriasis [Unknown]
  - Mobility decreased [Not Recovered/Not Resolved]
  - Peripheral swelling [Recovering/Resolving]
  - Pain in extremity [Not Recovered/Not Resolved]
  - Clavicle fracture [Recovering/Resolving]
  - Pain in extremity [Recovering/Resolving]
  - Surgical failure [Unknown]
  - Joint stiffness [Unknown]

NARRATIVE: CASE EVENT DATE: 20190609
